FAERS Safety Report 11750346 (Version 1)
Quarter: 2015Q4

REPORT INFORMATION
  Report Type: Spontaneous
  Country: US (occurrence: US)
  Receive Date: 20151118
  Receipt Date: 20151118
  Transmission Date: 20160304
  Serious: No
  Sender: FDA-Public Use
  Company Number: US-AKORN, INC.-1044369

PATIENT
  Sex: Female

DRUGS (1)
  1. TROPICAMIDE. [Suspect]
     Active Substance: TROPICAMIDE
     Indication: DIAGNOSTIC PROCEDURE
     Route: 047
     Dates: start: 20141206, end: 20141206

REACTIONS (1)
  - Drug effect prolonged [Unknown]

NARRATIVE: CASE EVENT DATE: 20141206
